FAERS Safety Report 24595220 (Version 1)
Quarter: 2024Q4

REPORT INFORMATION
  Report Type: Report from Study
  Country: DE (occurrence: DE)
  Receive Date: 20241108
  Receipt Date: 20241108
  Transmission Date: 20250115
  Serious: Yes (Hospitalization)
  Sender: ABBVIE
  Company Number: DE-ABBVIE-5994349

PATIENT
  Age: 77 Year
  Sex: Female

DRUGS (2)
  1. FOSCARBIDOPA\FOSLEVODOPA [Suspect]
     Active Substance: FOSCARBIDOPA\FOSLEVODOPA
     Indication: Parkinson^s disease
     Dosage: SD: 0.60ML, CRN: 0.33ML/H, CR: 0.40ML/H, CRH: 0.44ML/H, ED: 0.15ML, ^LAST ADMIN DATE 2024^
     Route: 058
     Dates: start: 20241016
  2. FOSCARBIDOPA\FOSLEVODOPA [Suspect]
     Active Substance: FOSCARBIDOPA\FOSLEVODOPA
     Dosage: CRN: 0.45 ML/H; CR: 0.50 ML/H, CRH: 0.53 ML/H.
     Route: 058
     Dates: start: 2024

REACTIONS (2)
  - Coronavirus infection [Not Recovered/Not Resolved]
  - Pneumonia [Not Recovered/Not Resolved]

NARRATIVE: CASE EVENT DATE: 20240101
